FAERS Safety Report 24022337 (Version 1)
Quarter: 2024Q2

REPORT INFORMATION
  Report Type: Spontaneous
  Country: JP (occurrence: JP)
  Receive Date: 20240627
  Receipt Date: 20240627
  Transmission Date: 20240716
  Serious: No
  Sender: FDA-Public Use
  Company Number: JP-CHUGAI-2024005472

PATIENT
  Age: 6 Decade

DRUGS (2)
  1. ROZLYTREK [Suspect]
     Active Substance: ENTRECTINIB
     Indication: Non-small cell lung cancer
     Route: 065
     Dates: start: 202308, end: 202309
  2. ROZLYTREK [Suspect]
     Active Substance: ENTRECTINIB
     Route: 065
     Dates: start: 202309

REACTIONS (1)
  - Dizziness [Recovering/Resolving]
